FAERS Safety Report 23223323 (Version 2)
Quarter: 2023Q4

REPORT INFORMATION
  Report Type: Spontaneous
  Country: US (occurrence: US)
  Receive Date: 20231123
  Receipt Date: 20231218
  Transmission Date: 20240109
  Serious: No
  Sender: FDA-Public Use
  Company Number: US-BRISTOL-MYERS SQUIBB COMPANY-2023-168885

PATIENT
  Age: 41 Year
  Sex: Male

DRUGS (1)
  1. SPRYCEL [Suspect]
     Active Substance: DASATINIB
     Indication: Acute lymphocytic leukaemia
     Route: 048
     Dates: start: 202308

REACTIONS (5)
  - Mouth ulceration [Unknown]
  - Gingival pain [Unknown]
  - Toothache [Unknown]
  - Diarrhoea [Unknown]
  - Gastrointestinal disorder [Unknown]
